FAERS Safety Report 21095094 (Version 1)
Quarter: 2022Q3

REPORT INFORMATION
  Report Type: Spontaneous
  Country: US (occurrence: None)
  Receive Date: 20220716
  Receipt Date: 20220716
  Transmission Date: 20221027
  Serious: No
  Sender: FDA-Public Use
  Company Number: None

PATIENT
  Age: 42 Year
  Sex: Female
  Weight: 90 kg

DRUGS (1)
  1. ZYRTEC ALLERGY [Suspect]
     Active Substance: CETIRIZINE HYDROCHLORIDE
     Indication: Arthropod bite
     Dosage: FREQUENCY : EVERY OTHER DAY;?
     Route: 048

REACTIONS (5)
  - Pruritus [None]
  - Hypersensitivity [None]
  - Urticaria [None]
  - Somnolence [None]
  - Impaired work ability [None]

NARRATIVE: CASE EVENT DATE: 20220713
